FAERS Safety Report 8352271-7 (Version None)
Quarter: 2012Q2

REPORT INFORMATION
  Report Type: 
  Country: None (occurrence: None)
  Receive Date: 20120509
  Receipt Date: 20120424
  Transmission Date: 20120825
  Serious: Yes (Hospitalization, Other)
  Sender: FDA-Public Use
  Company Number: LMI-2012-00051

PATIENT
  Age: 78 Year
  Sex: Male
  Weight: 85.7298 kg

DRUGS (9)
  1. DEFINITY [Suspect]
     Indication: CEREBROVASCULAR ACCIDENT
     Dosage: 1.5 ML DEFINITY DILUTED WITH 8.5 ML NORMAL SALINE (0.5 ML), INTRAVENOUS BOLUS
     Route: 040
     Dates: start: 20120209, end: 20120209
  2. DEFINITY [Suspect]
     Indication: ECHOCARDIOGRAM
     Dosage: 1.5 ML DEFINITY DILUTED WITH 8.5 ML NORMAL SALINE (0.5 ML), INTRAVENOUS BOLUS
     Route: 040
     Dates: start: 20120209, end: 20120209
  3. LOPRESSOR [Concomitant]
  4. HYOSCYMAINE (HYOSCYAMINE) [Concomitant]
  5. HYDRODIURIL [Concomitant]
  6. ZESTRIL [Concomitant]
  7. LIPITOR [Concomitant]
  8. LOVENOX [Concomitant]
  9. NEURONTIN [Concomitant]

REACTIONS (9)
  - ACUTE PULMONARY OEDEMA [None]
  - PRURITUS [None]
  - SINUS TACHYCARDIA [None]
  - DELIRIUM [None]
  - HYPOKALAEMIA [None]
  - ANGIOEDEMA [None]
  - RALES [None]
  - AGITATION [None]
  - WHEEZING [None]
